FAERS Safety Report 4934742-6 (Version None)
Quarter: 2006Q1

REPORT INFORMATION
  Report Type: 
  Country: None (occurrence: None)
  Receive Date: 20060307
  Receipt Date: 20060224
  Transmission Date: 20060701
  Serious: Yes (Life-Threatening, Hospitalization)
  Sender: FDA-Public Use
  Company Number: FR-MERCK-0603FRA00006

PATIENT
  Age: 53 Year
  Sex: Female

DRUGS (5)
  1. VIOXX [Suspect]
     Indication: MIGRAINE
     Route: 048
  2. CELECOXIB [Suspect]
     Indication: MIGRAINE
     Route: 048
  3. ELETRIPTAN HYDROBROMIDE [Suspect]
     Indication: MIGRAINE
     Route: 048
     Dates: start: 20021001
  4. ATENOLOL [Concomitant]
     Indication: MIGRAINE
     Route: 048
     Dates: start: 19900101
  5. NARATRIPTAN HYDROCHLORIDE [Suspect]
     Indication: MIGRAINE
     Route: 048
     Dates: start: 20040601

REACTIONS (3)
  - DIVERTICULITIS [None]
  - DRUG INTERACTION [None]
  - SIGMOIDITIS [None]
